FAERS Safety Report 4920256-6 (Version None)
Quarter: 2006Q1

REPORT INFORMATION
  Report Type: 
  Country: None (occurrence: None)
  Receive Date: 20060113
  Receipt Date: 20050928
  Transmission Date: 20060701
  Serious: No
  Sender: FDA-Public Use
  Company Number: 2005SP003269

PATIENT
  Age: 57 Year
  Sex: Female
  Weight: 84.8226 kg

DRUGS (2)
  1. LUNESTA [Suspect]
     Dosage: 2 MG, HS, ORAL
     Route: 048
     Dates: start: 20050912, end: 20050914
  2. LUNESTA [Suspect]
     Dosage: 2 MG, HS, ORAL
     Route: 048
     Dates: start: 20050927

REACTIONS (1)
  - DYSGEUSIA [None]
